FAERS Safety Report 7245035-9 (Version None)
Quarter: 2011Q1

REPORT INFORMATION
  Report Type: 
  Country: None (occurrence: None)
  Receive Date: 20110126
  Receipt Date: 20110118
  Transmission Date: 20110831
  Serious: Yes (Hospitalization)
  Sender: FDA-Public Use
  Company Number: FR-JNJFOC-20110105578

PATIENT
  Sex: Female

DRUGS (4)
  1. VOGALENE [Suspect]
     Indication: GASTROENTERITIS
  2. PEPCID COMPLETE [Suspect]
     Indication: GASTROENTERITIS
     Route: 048
  3. SPASFON [Suspect]
     Indication: GASTROENTERITIS
  4. PEPCID COMPLETE [Suspect]
     Route: 048

REACTIONS (5)
  - ANGIOEDEMA [None]
  - DYSPHAGIA [None]
  - PARAESTHESIA ORAL [None]
  - DYSPHONIA [None]
  - PALATAL OEDEMA [None]
